FAERS Safety Report 4754680-1 (Version None)
Quarter: 2005Q3

REPORT INFORMATION
  Report Type: 
  Country: None (occurrence: None)
  Receive Date: 20050829
  Receipt Date: 20050324
  Transmission Date: 20060218
  Serious: Yes (Hospitalization, Disabling)
  Sender: FDA-Public Use
  Company Number: US-MERCK-0503USA04560

PATIENT
  Age: 50 Year
  Sex: Male
  Weight: 102 kg

DRUGS (25)
  1. VIOXX [Suspect]
     Indication: BACK PAIN
     Route: 048
     Dates: start: 20010101, end: 20030616
  2. VIOXX [Suspect]
     Indication: ARTHRALGIA
     Route: 048
     Dates: start: 20010101, end: 20030616
  3. DIOVAN [Concomitant]
     Indication: HYPERTENSION
     Route: 065
     Dates: start: 20010101, end: 20030101
  4. NORVASC [Concomitant]
     Indication: HYPERTENSION
     Route: 065
     Dates: start: 19980101, end: 20040101
  5. VIAGRA [Concomitant]
     Route: 065
  6. TYLENOL [Concomitant]
     Route: 065
     Dates: start: 20000101, end: 20040101
  7. ADVIL [Concomitant]
     Route: 065
     Dates: start: 20000101, end: 20040101
  8. ALEVE [Concomitant]
     Route: 065
     Dates: start: 20000101, end: 20040101
  9. MOTRIN [Concomitant]
     Route: 065
     Dates: start: 20000101, end: 20040101
  10. TYLENOL W/ CODEINE NO. 4 [Concomitant]
     Indication: ARTHRALGIA
     Route: 065
     Dates: start: 20010101
  11. HYDROCODONE BITARTRATE + ACETAMINOPHEN [Concomitant]
     Indication: ARTHRALGIA
     Route: 065
     Dates: start: 20020701
  12. PERCOCET [Concomitant]
     Route: 065
     Dates: start: 20010101
  13. PERCOCET [Concomitant]
     Route: 065
     Dates: start: 20021101
  14. ACETAMINOPHEN AND OXYCODONE HYDROCHLORIDE [Concomitant]
     Indication: ARTHRALGIA
     Route: 065
     Dates: start: 20020701
  15. ACETAMINOPHEN AND OXYCODONE HYDROCHLORIDE [Concomitant]
     Route: 065
     Dates: start: 20021001
  16. GLYBURIDE [Concomitant]
     Indication: DIABETES MELLITUS
     Route: 065
  17. METFORMIN [Concomitant]
     Indication: DIABETES MELLITUS
     Route: 065
  18. AVANDIA [Concomitant]
     Indication: DIABETES MELLITUS
     Route: 065
  19. GLUCOTROL [Concomitant]
     Indication: DIABETES MELLITUS
     Route: 065
  20. HYDROCHLOROTHIAZIDE [Concomitant]
     Indication: HYPERTENSION
     Route: 065
     Dates: start: 19920101
  21. PREVACID [Concomitant]
     Indication: STOMACH DISCOMFORT
     Route: 065
  22. PRINIVIL [Concomitant]
     Route: 065
  23. K-DUR 10 [Concomitant]
     Route: 065
  24. [THERAPY UNSPECIFIED] [Concomitant]
     Indication: CONSTIPATION
     Route: 065
  25. VICODIN [Concomitant]
     Route: 065
     Dates: start: 20010101

REACTIONS (12)
  - CHEST PAIN [None]
  - CHRONIC OBSTRUCTIVE PULMONARY DISEASE [None]
  - DIABETES MELLITUS NON-INSULIN-DEPENDENT [None]
  - FATIGUE [None]
  - GALLBLADDER DISORDER [None]
  - GASTRIC CANCER [None]
  - HAEMATOCHEZIA [None]
  - HYPERTENSION [None]
  - INTERVERTEBRAL DISC PROTRUSION [None]
  - MYOCARDIAL INFARCTION [None]
  - UPPER RESPIRATORY TRACT INFECTION [None]
  - VISION BLURRED [None]
